FAERS Safety Report 9714187 (Version 1)
Quarter: 2013Q4

REPORT INFORMATION
  Report Type: Spontaneous
  Country: US (occurrence: US)
  Receive Date: 20131126
  Receipt Date: 20131126
  Transmission Date: 20140711
  Serious: No
  Sender: FDA-Public Use
  Company Number: US-GILEAD-2008-0019289

PATIENT
  Sex: Female
  Weight: 41.73 kg

DRUGS (10)
  1. LETAIRIS [Suspect]
     Indication: PULMONARY ARTERIAL HYPERTENSION
     Route: 048
     Dates: start: 20080124
  2. FOSAMAX [Concomitant]
     Route: 048
  3. PLAQUENIL [Concomitant]
     Route: 048
  4. ISOSORBIDE DN [Concomitant]
     Route: 048
  5. NIFEDIPINE [Concomitant]
     Route: 048
  6. NEXIUM [Concomitant]
     Route: 048
  7. METOPROLOL [Concomitant]
     Route: 048
  8. VITAMIN D [Concomitant]
     Route: 048
  9. CALCIUM [Concomitant]
     Route: 048
  10. ASPRIN [Concomitant]
     Route: 048

REACTIONS (3)
  - Wheezing [Unknown]
  - Unevaluable event [Unknown]
  - Nasal congestion [Unknown]
